FAERS Safety Report 13243780 (Version 2)
Quarter: 2017Q2

REPORT INFORMATION
  Report Type: Spontaneous
  Country: JP (occurrence: JP)
  Receive Date: 20170217
  Receipt Date: 20170505
  Transmission Date: 20170830
  Serious: Yes (Other)
  Sender: FDA-Public Use
  Company Number: JP-FERRINGPH-2017FE00662

PATIENT

DRUGS (3)
  1. ESTRAMUSTINE PHOSPHATE SODIUM [Concomitant]
     Active Substance: ESTRAMUSTINE PHOSPHATE SODIUM
     Indication: PREOPERATIVE HORMONE TREATMENT
     Dosage: 313.4 MG, UNK
     Route: 065
  2. GONAX [Suspect]
     Active Substance: DEGARELIX
     Indication: PREOPERATIVE HORMONE TREATMENT
     Dosage: 120 MG, ONCE/SINGLE
     Route: 065
  3. GONAX [Suspect]
     Active Substance: DEGARELIX
     Indication: PROSTATE CANCER
     Dosage: 80 MG, MONTHLY
     Route: 058

REACTIONS (2)
  - Intentional underdose [Recovered/Resolved]
  - Deep vein thrombosis [Recovered/Resolved]
